FAERS Safety Report 24359898 (Version 1)
Quarter: 2024Q3

REPORT INFORMATION
  Report Type: Spontaneous
  Country: FR (occurrence: FR)
  Receive Date: 20240924
  Receipt Date: 20240924
  Transmission Date: 20241016
  Serious: Yes (Death)
  Sender: JOHNSON AND JOHNSON
  Company Number: None

PATIENT
  Age: 44 Year
  Sex: Male
  Weight: 79 kg

DRUGS (2)
  1. REMICADE [Suspect]
     Active Substance: INFLIXIMAB
     Indication: Sarcoidosis
     Dosage: 800MG AT S0, S2 AND S6
     Route: 042
     Dates: start: 20240606, end: 20240717
  2. PREDNISONE [Suspect]
     Active Substance: PREDNISONE
     Indication: Sarcoidosis
     Dosage: 80 MG/D THEN 40 MG/D FROM 07/17
     Route: 048
     Dates: start: 20240524, end: 20240721

REACTIONS (2)
  - Completed suicide [Fatal]
  - Hanging [Fatal]

NARRATIVE: CASE EVENT DATE: 20240722
